FAERS Safety Report 8044964 (Version 10)
Quarter: 2013Q1

REPORT INFORMATION
  Report Type: Spontaneous
  Country: US (occurrence: US)
  Receive Date: 20110720
  Receipt Date: 20130118
  Transmission Date: 20140127
  Serious: Yes (Hospitalization)
  Sender: FDA-Public Use
  Company Number: US-ELI_LILLY_AND_COMPANY-US201104005837

PATIENT
  Age: 78 None
  Sex: Female
  Weight: 62.13 kg

DRUGS (27)
  1. FORTEO [Suspect]
     Indication: OSTEOPOROSIS
     Dosage: 20 UG, QD
     Dates: start: 201103
  2. FORTEO [Suspect]
     Dosage: 20 UG, QD
  3. FORTEO [Suspect]
     Dosage: 20 UG, QD
     Dates: end: 201106
  4. FORTEO [Suspect]
     Dosage: 20 UG, QD
  5. FORTEO [Suspect]
     Dosage: 20 UG, QD
     Dates: end: 20110915
  6. FORTEO [Suspect]
     Dosage: 20 UG, QD
     Route: 065
  7. FORTEO [Suspect]
     Dosage: 20 UG, QD
     Route: 065
  8. FORTEO [Suspect]
     Dosage: 20 UG, QD
     Route: 065
  9. FORTEO [Suspect]
     Dosage: 20 UG, QD
     Dates: start: 20110312
  10. CYMBALTA [Suspect]
     Indication: PAIN
     Dosage: UNK, UNKNOWN
     Route: 065
     Dates: start: 201201
  11. FERROUS SULFATE [Concomitant]
  12. OROTIC ACID [Concomitant]
  13. ASPIRIN [Concomitant]
     Dosage: 325 MG, QD
  14. MOBIC [Concomitant]
     Dosage: 15 MG, QD
  15. COLACE [Concomitant]
     Dosage: 100 MG, BID
  16. OMEPRAZOLE [Concomitant]
     Dosage: UNK, QD
  17. PRILOSEC [Concomitant]
  18. VITAMIN B12 [Concomitant]
  19. CALCIUM [Concomitant]
  20. CRESTOR [Concomitant]
     Dosage: 10 MG, QD
  21. TOPAMAX [Concomitant]
     Dosage: 25 MG, QD
  22. PAMELOR [Concomitant]
  23. ANTIACID [Concomitant]
  24. ZOCOR [Concomitant]
  25. PERCOCET [Concomitant]
     Indication: PAIN
     Dosage: 1-2 TABLETS 4-6 HOURS
  26. TOPROL [Concomitant]
     Dosage: UNK, UNKNOWN
  27. FOLIC ACID [Concomitant]
     Dosage: UNK, UNKNOWN

REACTIONS (38)
  - Arthropathy [Recovering/Resolving]
  - Headache [Unknown]
  - Osteoporosis [Unknown]
  - Mobility decreased [Unknown]
  - Movement disorder [Not Recovered/Not Resolved]
  - Vulvovaginal pain [Recovered/Resolved]
  - Joint swelling [Unknown]
  - Joint swelling [Recovered/Resolved]
  - Somnolence [Unknown]
  - Memory impairment [Unknown]
  - Musculoskeletal stiffness [Unknown]
  - Bone pain [Recovered/Resolved]
  - Pain in extremity [Recovered/Resolved]
  - Gait disturbance [Recovered/Resolved]
  - Flatulence [Recovering/Resolving]
  - Fall [Unknown]
  - Fear [Unknown]
  - Fear [Unknown]
  - Dizziness [Unknown]
  - Headache [Unknown]
  - Headache [Recovered/Resolved]
  - Vomiting [Unknown]
  - Constipation [Unknown]
  - Arthralgia [Recovered/Resolved]
  - Arthralgia [Not Recovered/Not Resolved]
  - Pain [Recovered/Resolved]
  - Pain [Recovered/Resolved]
  - Pain [Unknown]
  - Nausea [Recovering/Resolving]
  - Blood calcium increased [Unknown]
  - Blood calcium increased [Not Recovered/Not Resolved]
  - Muscle spasms [Unknown]
  - Red blood cell sedimentation rate increased [Unknown]
  - Malaise [Unknown]
  - Muscle tightness [Unknown]
  - Headache [Unknown]
  - Malaise [Unknown]
  - Gastric disorder [Unknown]
